FAERS Safety Report 7677723-4 (Version None)
Quarter: 2011Q3

REPORT INFORMATION
  Report Type: 
  Country: None (occurrence: None)
  Receive Date: 20110811
  Receipt Date: 20110808
  Transmission Date: 20111222
  Serious: Yes (Death, Hospitalization, Other)
  Sender: FDA-Public Use
  Company Number: PHHY2011US03090

PATIENT
  Sex: Male

DRUGS (1)
  1. GLEEVEC [Suspect]
     Indication: CHRONIC MYELOID LEUKAEMIA
     Dosage: 400 MG, QD
     Route: 048
     Dates: start: 20101207

REACTIONS (8)
  - MULTI-ORGAN FAILURE [None]
  - HEPATIC FAILURE [None]
  - ASCITES [None]
  - SQUAMOUS CELL CARCINOMA OF SKIN [None]
  - PERITONITIS BACTERIAL [None]
  - HEPATIC CIRRHOSIS [None]
  - SEPSIS [None]
  - NEOPLASM MALIGNANT [None]
